FAERS Safety Report 8408640-X (Version None)
Quarter: 2012Q2

REPORT INFORMATION
  Report Type: 
  Country: None (occurrence: None)
  Receive Date: 20120604
  Receipt Date: 20120124
  Transmission Date: 20120825
  Serious: No
  Sender: FDA-Public Use
  Company Number: US-NOVEN-12US003986

PATIENT
  Sex: Female
  Weight: 36.281 kg

DRUGS (2)
  1. DAYTRANA [Suspect]
     Dosage: 10 MG, UNK
     Route: 062
     Dates: start: 20110101
  2. DAYTRANA [Suspect]
     Indication: ATTENTION DEFICIT/HYPERACTIVITY DISORDER
     Dosage: 15 MG, UNK
     Route: 062
     Dates: end: 20120101

REACTIONS (3)
  - APPLICATION SITE ERYTHEMA [None]
  - APPLICATION SITE PRURITUS [None]
  - ECZEMA [None]
